FAERS Safety Report 5977930-2 (Version None)
Quarter: 2008Q4

REPORT INFORMATION
  Report Type: 
  Country: None (occurrence: None)
  Receive Date: 20081203
  Receipt Date: 20081113
  Transmission Date: 20090506
  Serious: No
  Sender: FDA-Public Use
  Company Number: US-B.I. PHARMACEUTICALS,INC./RIDGEFIELD-2008-BP-17254BP

PATIENT
  Age: 85 Year
  Sex: Male

DRUGS (1)
  1. COMBIVENT [Suspect]

REACTIONS (5)
  - BREAST SWELLING [None]
  - LYMPHADENOPATHY [None]
  - NIPPLE DISORDER [None]
  - NIPPLE PAIN [None]
  - NIPPLE SWELLING [None]
